FAERS Safety Report 6445629-4 (Version None)
Quarter: 2009Q4

REPORT INFORMATION
  Report Type: 
  Country: None (occurrence: None)
  Receive Date: 20091118
  Receipt Date: 20091118
  Transmission Date: 20100525
  Serious: Yes (Other)
  Sender: FDA-Public Use
  Company Number: None

PATIENT
  Sex: Female
  Weight: 53.5244 kg

DRUGS (1)
  1. CEPHALEXIN [Suspect]
     Indication: SIALOADENITIS
     Dosage: ONE CAPSULE BY MOUTH 4 TIMES DAILY  500 MG 4 X DAILY
     Route: 048
     Dates: start: 20090910, end: 20090917

REACTIONS (1)
  - TREMOR [None]
